FAERS Safety Report 8341772-3 (Version None)
Quarter: 2012Q2

REPORT INFORMATION
  Report Type: 
  Country: None (occurrence: None)
  Receive Date: 20120507
  Receipt Date: 20120423
  Transmission Date: 20120825
  Serious: Yes (Other)
  Sender: FDA-Public Use
  Company Number: US-ELI_LILLY_AND_COMPANY-US201204008655

PATIENT
  Sex: Female

DRUGS (1)
  1. CYMBALTA [Suspect]
     Indication: PAIN
     Dosage: 60 MG, QD

REACTIONS (11)
  - MEMORY IMPAIRMENT [None]
  - DECREASED APPETITE [None]
  - DEPRESSED MOOD [None]
  - PAIN [None]
  - VOMITING [None]
  - SUICIDAL IDEATION [None]
  - SKIN EXFOLIATION [None]
  - DRUG INEFFECTIVE [None]
  - WEIGHT DECREASED [None]
  - NERVOUSNESS [None]
  - OROPHARYNGEAL BLISTERING [None]
